FAERS Safety Report 7072707-1 (Version None)
Quarter: 2010Q4

REPORT INFORMATION
  Report Type: 
  Country: None (occurrence: None)
  Receive Date: 20101029
  Receipt Date: 20101021
  Transmission Date: 20110411
  Serious: Yes (Other)
  Sender: FDA-Public Use
  Company Number: FR-NOVOPROD-316981

PATIENT
  Age: 43 Year
  Sex: Male

DRUGS (2)
  1. VICTOZA [Suspect]
     Indication: PRODUCT USED FOR UNKNOWN INDICATION
     Dosage: 0.6 MG, QD
     Route: 058
     Dates: end: 20101022
  2. METFORMIN [Concomitant]

REACTIONS (2)
  - CONDITION AGGRAVATED [None]
  - HEPATIC CIRRHOSIS [None]
